FAERS Safety Report 9408987 (Version 1)
Quarter: 2013Q3

REPORT INFORMATION
  Report Type: Spontaneous
  Country: FR (occurrence: FR)
  Receive Date: 20130719
  Receipt Date: 20130719
  Transmission Date: 20140515
  Serious: Yes (Hospitalization)
  Sender: FDA-Public Use
  Company Number: FR-009507513-1307FRA005636

PATIENT
  Age: 84 Year
  Sex: Male

DRUGS (9)
  1. INVANZ [Suspect]
     Indication: ENDOCARDITIS
     Dosage: 1 G, QD
     Route: 042
     Dates: start: 20130525, end: 20130603
  2. BACTRIM FORTE [Suspect]
     Indication: ENDOCARDITIS
     Dosage: 2 DF, TID
     Route: 048
     Dates: start: 20130525, end: 20130603
  3. COAPROVEL [Concomitant]
  4. COTAREG [Concomitant]
  5. DIFFU-K [Concomitant]
  6. SPASFON [Concomitant]
  7. ZOPICLONE [Concomitant]
  8. KARDEGIC [Concomitant]
  9. LOVENOX [Concomitant]

REACTIONS (3)
  - Vasculitis [Recovered/Resolved]
  - Purpura [Recovered/Resolved]
  - Confusional state [Recovered/Resolved]
